FAERS Safety Report 26121652 (Version 1)
Quarter: 2025Q4

REPORT INFORMATION
  Report Type: Spontaneous
  Country: US (occurrence: US)
  Receive Date: 20251204
  Receipt Date: 20251204
  Transmission Date: 20260118
  Serious: Yes (Other)
  Sender: GRIFOLS
  Company Number: US-IGSA-BIG0039707

PATIENT
  Sex: Female

DRUGS (3)
  1. XEMBIFY [Suspect]
     Active Substance: HUMAN IMMUNOGLOBULIN G
     Indication: Chronic sinusitis
     Dosage: 8 GRAM, Q.WK.
     Route: 058
  2. XEMBIFY [Suspect]
     Active Substance: HUMAN IMMUNOGLOBULIN G
     Indication: Off label use
  3. PLAQUENIL [Suspect]
     Active Substance: HYDROXYCHLOROQUINE SULFATE

REACTIONS (4)
  - Sinusitis [Unknown]
  - Paronychia [Unknown]
  - Systemic lupus erythematosus [Unknown]
  - Drug ineffective [Unknown]
